FAERS Safety Report 5902679-1 (Version None)
Quarter: 2008Q3

REPORT INFORMATION
  Report Type: 
  Country: None (occurrence: None)
  Receive Date: 20080929
  Receipt Date: 20080929
  Transmission Date: 20090109
  Serious: Yes (Hospitalization)
  Sender: FDA-Public Use
  Company Number: None

PATIENT
  Age: 54 Year
  Sex: Male
  Weight: 80 kg

DRUGS (1)
  1. BEVACIZUMAB [Suspect]
     Dosage: 700 MG Q 14 DAYS IV
     Route: 042
     Dates: start: 20070816, end: 20080917

REACTIONS (1)
  - ANGINA PECTORIS [None]
